FAERS Safety Report 18874070 (Version 8)
Quarter: 2023Q1

REPORT INFORMATION
  Report Type: Spontaneous
  Country: US (occurrence: US)
  Receive Date: 20210210
  Receipt Date: 20230307
  Transmission Date: 20230418
  Serious: Yes (Other)
  Sender: FDA-Public Use
  Company Number: US-SA-SAC20210206001321

PATIENT
  Age: 67 Year
  Sex: Female

DRUGS (2)
  1. AUBAGIO [Suspect]
     Active Substance: TERIFLUNOMIDE
     Indication: Multiple sclerosis
     Dosage: 14 MG, QD
     Route: 048
     Dates: start: 20191210
  2. MELOXICAM [Suspect]
     Active Substance: MELOXICAM
     Dosage: UNK

REACTIONS (17)
  - Hyperthyroidism [Unknown]
  - Lung neoplasm malignant [Unknown]
  - Multiple sclerosis [Unknown]
  - Hepatic cancer [Unknown]
  - Skin disorder [Unknown]
  - Seborrhoeic dermatitis [Unknown]
  - Paronychia [Unknown]
  - Rash [Unknown]
  - Nervous system disorder [Unknown]
  - Anxiety [Unknown]
  - Arthropathy [Unknown]
  - Limb discomfort [Not Recovered/Not Resolved]
  - Liver function test abnormal [Unknown]
  - Hepatic enzyme abnormal [Unknown]
  - Pain [Unknown]
  - Tendon rupture [Unknown]
  - Prescription drug used without a prescription [Unknown]

NARRATIVE: CASE EVENT DATE: 20190101
